FAERS Safety Report 21112134 (Version 1)
Quarter: 2022Q3

REPORT INFORMATION
  Report Type: Spontaneous
  Country: US (occurrence: US)
  Receive Date: 20220721
  Receipt Date: 20220721
  Transmission Date: 20221026
  Serious: No
  Sender: FDA-Public Use
  Company Number: US-BAUSCH-BL-2022-018046

PATIENT
  Sex: Male

DRUGS (4)
  1. TRULANCE [Suspect]
     Active Substance: PLECANATIDE
     Indication: Product used for unknown indication
     Route: 065
  2. TRULANCE [Suspect]
     Active Substance: PLECANATIDE
     Route: 065
  3. TRULANCE [Suspect]
     Active Substance: PLECANATIDE
     Route: 065
  4. TRULANCE [Suspect]
     Active Substance: PLECANATIDE
     Route: 065
     Dates: start: 2020

REACTIONS (3)
  - Constipation [Unknown]
  - Drug ineffective [Unknown]
  - Product quality issue [Unknown]
